FAERS Safety Report 16735011 (Version 3)
Quarter: 2019Q3

REPORT INFORMATION
  Report Type: Spontaneous
  Country: US (occurrence: US)
  Receive Date: 20190823
  Receipt Date: 20190926
  Transmission Date: 20191005
  Serious: Yes (Other)
  Sender: FDA-Public Use
  Company Number: US-IGSA-SR10008955

PATIENT
  Age: 85 Year
  Sex: Female
  Weight: 75.15 kg

DRUGS (60)
  1. NEXIUM [Concomitant]
     Active Substance: ESOMEPRAZOLE MAGNESIUM
  2. PLAQUENIL                          /00072602/ [Concomitant]
     Active Substance: HYDROXYCHLOROQUINE DIPHOSPHATE
  3. FLECAINIDE ACETATE. [Concomitant]
     Active Substance: FLECAINIDE ACETATE
  4. B COMPLEX                          /00322001/ [Concomitant]
     Active Substance: CALCIUM PANTOTHENATE\CYANOCOBALAMIN\NIACINAMIDE\PYRIDOXINE HYDROCHLORIDE\RIBOFLAVIN\THIAMINE HYDROCHLORIDE
  5. VITAMIN B12 [Concomitant]
     Active Substance: CYANOCOBALAMIN
  6. PROAIR HFA [Concomitant]
     Active Substance: ALBUTEROL SULFATE
  7. AUGMENTIN [Concomitant]
     Active Substance: AMOXICILLIN\CLAVULANATE POTASSIUM
     Indication: CHRONIC INFLAMMATORY DEMYELINATING POLYRADICULONEUROPATHY
  8. AMBIEN [Concomitant]
     Active Substance: ZOLPIDEM TARTRATE
  9. IMURAN [Concomitant]
     Active Substance: AZATHIOPRINE
  10. DILTIAZEM. [Concomitant]
     Active Substance: DILTIAZEM
  11. ARICEPT [Concomitant]
     Active Substance: DONEPEZIL HYDROCHLORIDE
  12. DILTIAZEM HCL [Concomitant]
     Active Substance: DILTIAZEM HYDROCHLORIDE
  13. SODIUM CHLORIDE. [Concomitant]
     Active Substance: SODIUM CHLORIDE
  14. SOLU-MEDROL [Concomitant]
     Active Substance: METHYLPREDNISOLONE SODIUM SUCCINATE
  15. GAMUNEX-C [Suspect]
     Active Substance: HUMAN IMMUNOGLOBULIN G
     Indication: CHRONIC INFLAMMATORY DEMYELINATING POLYRADICULONEUROPATHY
     Dosage: 60 G, UNK
  16. AZATHIOPRINE. [Concomitant]
     Active Substance: AZATHIOPRINE
  17. FOLIC ACID. [Concomitant]
     Active Substance: FOLIC ACID
  18. NORCO [Concomitant]
     Active Substance: ACETAMINOPHEN\HYDROCODONE BITARTRATE
  19. LACTULOSE. [Concomitant]
     Active Substance: LACTULOSE
  20. OXYCODONE [Concomitant]
     Active Substance: OXYCODONE
  21. ADVAIR HFA [Concomitant]
     Active Substance: FLUTICASONE PROPIONATE\SALMETEROL XINAFOATE
  22. CLONAZEPAM. [Concomitant]
     Active Substance: CLONAZEPAM
  23. SULFAMETHOXAZOLE AND TRIMETHOPRIM [Concomitant]
     Active Substance: SULFAMETHOXAZOLE\TRIMETHOPRIM
  24. DIPHENHYDRAMINE HCL [Concomitant]
     Active Substance: DIPHENHYDRAMINE HYDROCHLORIDE
  25. NORCO [Concomitant]
     Active Substance: ACETAMINOPHEN\HYDROCODONE BITARTRATE
  26. COUMADIN [Concomitant]
     Active Substance: WARFARIN SODIUM
  27. HYDROCODONE BITARTRATE AND ACETAMINOPHEN [Concomitant]
     Active Substance: ACETAMINOPHEN\HYDROCODONE BITARTRATE
  28. COUMADIN [Concomitant]
     Active Substance: WARFARIN SODIUM
  29. TRAZODONE HYDROCHLORIDE. [Concomitant]
     Active Substance: TRAZODONE HYDROCHLORIDE
  30. XANAX [Concomitant]
     Active Substance: ALPRAZOLAM
  31. GABAPENTIN. [Concomitant]
     Active Substance: GABAPENTIN
  32. METOPROLOL SUCCINATE. [Concomitant]
     Active Substance: METOPROLOL SUCCINATE
  33. ZOLOFT [Concomitant]
     Active Substance: SERTRALINE HYDROCHLORIDE
  34. TYLENOL [Concomitant]
     Active Substance: ACETAMINOPHEN
  35. MIRAPEX [Concomitant]
     Active Substance: PRAMIPEXOLE DIHYDROCHLORIDE
  36. NITROFURANTOIN MACROCRYSTALS [Concomitant]
     Active Substance: NITROFURANTOIN
  37. DONEPEZIL HCL [Concomitant]
     Active Substance: DONEPEZIL HYDROCHLORIDE
  38. VENTOLIN [Concomitant]
     Active Substance: ALBUTEROL SULFATE
  39. ESTRADIOL. [Concomitant]
     Active Substance: ESTRADIOL
  40. EPIPEN [Concomitant]
     Active Substance: EPINEPHRINE
  41. PROZAC [Concomitant]
     Active Substance: FLUOXETINE HYDROCHLORIDE
  42. DULOXETINE HCL [Concomitant]
     Active Substance: DULOXETINE HYDROCHLORIDE
  43. ELIQUIS [Concomitant]
     Active Substance: APIXABAN
  44. MAPAP [Concomitant]
     Active Substance: ACETAMINOPHEN
  45. CALCIUM 600 + D [Concomitant]
     Active Substance: CALCIUM\VITAMIN D
  46. PLAQUENIL                          /00072602/ [Concomitant]
     Active Substance: HYDROXYCHLOROQUINE DIPHOSPHATE
  47. AUGMENTIN [Concomitant]
     Active Substance: AMOXICILLIN\CLAVULANATE POTASSIUM
  48. MICARDIS [Concomitant]
     Active Substance: TELMISARTAN
  49. LEVOTHYROXINE SODIUM. [Concomitant]
     Active Substance: LEVOTHYROXINE SODIUM
  50. MELOXICAM. [Concomitant]
     Active Substance: MELOXICAM
  51. GAMUNEX-C [Suspect]
     Active Substance: HUMAN IMMUNOGLOBULIN G
     Dosage: 60 G, UNK
     Route: 042
  52. MULTIVITAMINS [Concomitant]
     Active Substance: VITAMINS
  53. CYANOCOBALAMIN. [Concomitant]
     Active Substance: CYANOCOBALAMIN
  54. TAMBOCOR [Concomitant]
     Active Substance: FLECAINIDE ACETATE
  55. NORMAL SALINE [Concomitant]
     Active Substance: SODIUM CHLORIDE
  56. BENADRYL [Concomitant]
     Active Substance: DIPHENHYDRAMINE HYDROCHLORIDE
  57. CALCIUM + MAGNESIUM + ZINK [Concomitant]
  58. CIPRO [Concomitant]
     Active Substance: CIPROFLOXACIN HYDROCHLORIDE
  59. FLUTICASONE PROPIONATE. [Concomitant]
     Active Substance: FLUTICASONE PROPIONATE
  60. EPINEPHRINE. [Concomitant]
     Active Substance: EPINEPHRINE

REACTIONS (2)
  - Urticaria [Recovered/Resolved]
  - Pruritus [Recovered/Resolved]

NARRATIVE: CASE EVENT DATE: 20190801
